FAERS Safety Report 17760581 (Version 3)
Quarter: 2022Q1

REPORT INFORMATION
  Report Type: Spontaneous
  Country: US (occurrence: US)
  Receive Date: 20200508
  Receipt Date: 20220314
  Transmission Date: 20220424
  Serious: Yes (Other)
  Sender: FDA-Public Use
  Company Number: US-PFIZER INC-2020184252

PATIENT
  Age: 76 Year
  Sex: Female
  Weight: 76.2 kg

DRUGS (2)
  1. XELJANZ XR [Suspect]
     Active Substance: TOFACITINIB CITRATE
     Indication: Rheumatoid arthritis
     Dosage: 11 MG, DAILY
     Route: 048
  2. RECLAST [Concomitant]
     Active Substance: ZOLEDRONIC ACID
     Indication: Osteoporosis
     Dosage: UNK, (EVERY 2 YEARS )

REACTIONS (8)
  - Spinal compression fracture [Unknown]
  - Back pain [Unknown]
  - Fall [Unknown]
  - Knee operation [Unknown]
  - Urinary tract infection [Unknown]
  - Bladder disorder [Unknown]
  - Hypersensitivity [Unknown]
  - Accidental overdose [Unknown]

NARRATIVE: CASE EVENT DATE: 20210211
